FAERS Safety Report 7446081-2 (Version None)
Quarter: 2011Q2

REPORT INFORMATION
  Report Type: 
  Country: None (occurrence: None)
  Receive Date: 20110429
  Receipt Date: 20110428
  Transmission Date: 20111010
  Serious: Yes (Hospitalization)
  Sender: FDA-Public Use
  Company Number: JP-ABBOTT-11P-087-0722297-00

PATIENT
  Sex: Male

DRUGS (8)
  1. HUMIRA [Suspect]
     Indication: CROHN'S DISEASE
     Route: 058
     Dates: start: 20110218, end: 20110218
  2. HUMIRA [Suspect]
     Dates: end: 20110415
  3. HUMIRA [Suspect]
  4. MESALAZINE [Concomitant]
     Indication: CROHN'S DISEASE
     Route: 048
     Dates: start: 20000321, end: 20110416
  5. REBAMIPIDE [Concomitant]
     Indication: GASTRITIS
     Route: 048
     Dates: start: 20000321, end: 20110416
  6. FEXOFENADINE HCL [Concomitant]
     Indication: RHINITIS ALLERGIC
     Dates: start: 20110218, end: 20110416
  7. CHINESE HERBAL MEDICINE [Concomitant]
     Indication: CROHN'S DISEASE
     Route: 048
     Dates: start: 20000313, end: 20110416
  8. ALFACALCIDOL [Concomitant]
     Indication: OSTEOPOROSIS
     Dates: start: 20040813, end: 20110416

REACTIONS (1)
  - SUBILEUS [None]
